FAERS Safety Report 16191421 (Version 1)
Quarter: 2019Q2

REPORT INFORMATION
  Report Type: Spontaneous
  Country: FR (occurrence: FR)
  Receive Date: 20190412
  Receipt Date: 20190412
  Transmission Date: 20190711
  Serious: Yes (Death)
  Sender: FDA-Public Use
  Company Number: FR-ANIPHARMA-2019-FR-000079

PATIENT
  Age: 72 Year
  Sex: Male

DRUGS (6)
  1. CANDESARTAN. [Suspect]
     Active Substance: CANDESARTAN
     Indication: HYPERTENSION
     Dosage: UNK
     Route: 048
     Dates: end: 20190122
  2. HEMIGOXINE NATIVELLE [Suspect]
     Active Substance: DIGOXIN
     Dosage: UNK
     Route: 048
     Dates: end: 20190123
  3. XARELTO [Suspect]
     Active Substance: RIVAROXABAN
     Dosage: 20 MG UNK
     Route: 048
     Dates: start: 201502, end: 20190122
  4. METFORMIN [Suspect]
     Active Substance: METFORMIN HYDROCHLORIDE
     Dosage: UNK
     Route: 048
     Dates: end: 20190122
  5. PERMIXON [Suspect]
     Active Substance: HERBALS\SAW PALMETTO
     Dosage: 160 MG UNK
     Route: 048
     Dates: end: 20190122
  6. VERAPAMIL [Suspect]
     Active Substance: VERAPAMIL HYDROCHLORIDE
     Dosage: UNK
     Route: 048
     Dates: end: 20190122

REACTIONS (4)
  - Hemiplegia [Fatal]
  - Coma [Fatal]
  - Death [Fatal]
  - Cerebral haematoma [Fatal]

NARRATIVE: CASE EVENT DATE: 20190123
